FAERS Safety Report 10183446 (Version 1)
Quarter: 2014Q2

REPORT INFORMATION
  Report Type: Spontaneous
  Country: US (occurrence: US)
  Receive Date: 20140520
  Receipt Date: 20140520
  Transmission Date: 20141212
  Serious: No
  Sender: FDA-Public Use
  Company Number: US-GILEAD-2014-0102753

PATIENT
  Sex: Male

DRUGS (3)
  1. LETAIRIS [Suspect]
     Dates: start: 20110217
  2. RIOCIGUAT [Suspect]
     Indication: PRODUCT USED FOR UNKNOWN INDICATION
     Route: 065
  3. REMODULIN [Concomitant]

REACTIONS (3)
  - Pruritus [Unknown]
  - Peripheral swelling [Unknown]
  - No therapeutic response [Unknown]
